FAERS Safety Report 19729660 (Version 5)
Quarter: 2021Q3

REPORT INFORMATION
  Report Type: Spontaneous
  Country: US (occurrence: US)
  Receive Date: 20210820
  Receipt Date: 20210930
  Transmission Date: 20211014
  Serious: Yes (Hospitalization)
  Sender: FDA-Public Use
  Company Number: US-GLAXOSMITHKLINE-US2021173184

PATIENT
  Age: 65 Year
  Sex: Female

DRUGS (1)
  1. NUCALA [Suspect]
     Active Substance: MEPOLIZUMAB
     Indication: ASTHMA
     Dosage: 100 MG/ML
     Dates: start: 202002

REACTIONS (9)
  - Accidental exposure to product [Unknown]
  - Underdose [Unknown]
  - Meniscus operation [Unknown]
  - Multiple allergies [Unknown]
  - Cough [Unknown]
  - Increased upper airway secretion [Unknown]
  - Sneezing [Unknown]
  - Product dose omission issue [Unknown]
  - Product complaint [Unknown]

NARRATIVE: CASE EVENT DATE: 202108
